FAERS Safety Report 10841601 (Version 1)
Quarter: 2015Q1

REPORT INFORMATION
  Report Type: Spontaneous
  Country: GB (occurrence: GB)
  Receive Date: 20150220
  Receipt Date: 20150220
  Transmission Date: 20150721
  Serious: Yes (Death, Hospitalization)
  Sender: FDA-Public Use
  Company Number: GB-ROCHE-1538172

PATIENT
  Age: 70 Year
  Sex: Male

DRUGS (1)
  1. CAPECITABINE. [Suspect]
     Active Substance: CAPECITABINE
     Indication: COLORECTAL CANCER
     Route: 065
     Dates: start: 20140906

REACTIONS (11)
  - Multi-organ failure [Not Recovered/Not Resolved]
  - Neutropenic sepsis [Fatal]
  - Hypotension [Unknown]
  - Decubitus ulcer [Unknown]
  - Giardiasis [Unknown]
  - Dysphagia [Not Recovered/Not Resolved]
  - Diarrhoea [Unknown]
  - Mouth swelling [Not Recovered/Not Resolved]
  - Pneumonia [Fatal]
  - Skin reaction [Not Recovered/Not Resolved]
  - Mucosal inflammation [Not Recovered/Not Resolved]

NARRATIVE: CASE EVENT DATE: 20140914
